FAERS Safety Report 23514105 (Version 1)
Quarter: 2024Q1

REPORT INFORMATION
  Report Type: Spontaneous
  Country: US (occurrence: None)
  Receive Date: 20240211
  Receipt Date: 20240211
  Transmission Date: 20240410
  Serious: Yes (unspecified)
  Sender: FDA-Public Use
  Company Number: None

PATIENT
  Age: 26 Year
  Sex: Female
  Weight: 67.5 kg

DRUGS (7)
  1. BLISOVI FE 1/20 [Suspect]
     Active Substance: ETHINYL ESTRADIOL\NORETHINDRONE ACETATE
     Indication: Oral contraception
  2. Levoxyl 100mcg [Concomitant]
  3. Vitamin D supplement [Concomitant]
  4. B12 Supplement [Concomitant]
  5. Omega 3 supplement [Concomitant]
  6. Daily Vit supplement [Concomitant]
  7. Buspirone 5mg (new as of 2/1/24) [Concomitant]

REACTIONS (2)
  - Meningioma [None]
  - Tinnitus [None]

NARRATIVE: CASE EVENT DATE: 20240201
